FAERS Safety Report 25955858 (Version 2)
Quarter: 2025Q4

REPORT INFORMATION
  Report Type: Report from Study
  Country: GB (occurrence: GB)
  Receive Date: 20251024
  Receipt Date: 20251208
  Transmission Date: 20260118
  Serious: Yes (Hospitalization, Other)
  Sender: IPSEN BIOPHARMACEUTICALS, INC.
  Company Number: GB-IPSEN Group, Research and Development-2025-09979

PATIENT
  Sex: Male

DRUGS (1)
  1. LANREOTIDE ACETATE [Suspect]
     Active Substance: LANREOTIDE ACETATE
     Indication: Neuroendocrine tumour
     Dosage: DEEP SUBCUT
     Route: 058

REACTIONS (5)
  - Ascites [Not Recovered/Not Resolved]
  - Cachexia [Not Recovered/Not Resolved]
  - Constipation [Not Recovered/Not Resolved]
  - Injection site mass [Not Recovered/Not Resolved]
  - Decreased appetite [Not Recovered/Not Resolved]
